FAERS Safety Report 6728295-X (Version None)
Quarter: 2010Q2

REPORT INFORMATION
  Report Type: 
  Country: None (occurrence: None)
  Receive Date: 20100517
  Receipt Date: 20100505
  Transmission Date: 20101027
  Serious: Yes (Other)
  Sender: FDA-Public Use
  Company Number: US-JNJCH-2010011104

PATIENT
  Age: 6 Year
  Sex: Male

DRUGS (1)
  1. BENADRYL [Suspect]
     Indication: DRUG USE FOR UNKNOWN INDICATION
     Dosage: TEXT:1 TSP THEN 1.5 TSP 4 HOUR LATER
     Route: 048
     Dates: start: 20100417, end: 20100417

REACTIONS (5)
  - ADVERSE DRUG REACTION [None]
  - DIARRHOEA [None]
  - DYSPNOEA [None]
  - PRODUCT QUALITY ISSUE [None]
  - RASH [None]
